FAERS Safety Report 8242238 (Version 2)
Quarter: 2013Q2

REPORT INFORMATION
  Report Type: Spontaneous
  Country: US (occurrence: US)
  Receive Date: 20111114
  Receipt Date: 20130515
  Transmission Date: 20140414
  Serious: No
  Sender: FDA-Public Use
  Company Number: US-BIOGENIDEC-2011BI042702

PATIENT
  Age: 57 Year
  Sex: Male

DRUGS (1)
  1. TYSABRI [Suspect]
     Indication: MULTIPLE SCLEROSIS
     Route: 042
     Dates: start: 20110204

REACTIONS (7)
  - Dysstasia [Recovered/Resolved]
  - Coordination abnormal [Recovered/Resolved]
  - Balance disorder [Recovered/Resolved]
  - Hypotonia [Recovered/Resolved]
  - General physical health deterioration [Not Recovered/Not Resolved]
  - Blood pressure increased [Recovered/Resolved]
  - Multiple sclerosis [Not Recovered/Not Resolved]
